FAERS Safety Report 6195883-1 (Version None)
Quarter: 2009Q2

REPORT INFORMATION
  Report Type: 
  Country: None (occurrence: None)
  Receive Date: 20090520
  Receipt Date: 20090507
  Transmission Date: 20091009
  Serious: Yes (Other)
  Sender: FDA-Public Use
  Company Number: US-ROCHE-548697

PATIENT
  Sex: Female
  Weight: 63.5 kg

DRUGS (1)
  1. ACCUTANE [Suspect]
     Indication: ACNE
     Dosage: THE PATIENT WAS DISPENSED ACCUTANE 20 MG CAPSULE ON 18 JULY 1996.
     Route: 065
     Dates: start: 19960718, end: 19960919

REACTIONS (20)
  - ABDOMINAL PAIN [None]
  - BLEPHARITIS [None]
  - CARCINOID TUMOUR [None]
  - CHOLECYSTITIS CHRONIC [None]
  - CHOLELITHIASIS [None]
  - COLITIS [None]
  - CROHN'S DISEASE [None]
  - EMOTIONAL DISTRESS [None]
  - ENDOMETRIOSIS [None]
  - HAEMANGIOMA OF LIVER [None]
  - HEPATIC LESION [None]
  - INFLAMMATORY BOWEL DISEASE [None]
  - INTESTINAL POLYP [None]
  - IRRITABLE BOWEL SYNDROME [None]
  - MALIGNANT NEOPLASM OF UTERINE ADNEXA [None]
  - OVARIAN CYST [None]
  - PILONIDAL CYST [None]
  - POLYCYSTIC OVARIES [None]
  - VISION BLURRED [None]
  - VITAMIN B12 DEFICIENCY [None]
